FAERS Safety Report 18841839 (Version 1)
Quarter: 2021Q1

REPORT INFORMATION
  Report Type: Spontaneous
  Country: None (occurrence: CH)
  Receive Date: 20210204
  Receipt Date: 20210204
  Transmission Date: 20210419
  Serious: Yes (Hospitalization, Other)
  Sender: FDA-Public Use
  Company Number: CH-ITALFARMACO SPA-2106327

PATIENT
  Age: 73 Year
  Sex: Male

DRUGS (3)
  1. TIGLUTIK [Suspect]
     Active Substance: RILUZOLE
  2. LERCANIDIPIN MEPHA LACTAB [Concomitant]
  3. CONDROSULF [Concomitant]
     Active Substance: SODIUM CHONDROITIN SULFATE

REACTIONS (1)
  - Oedematous pancreatitis [Unknown]

NARRATIVE: CASE EVENT DATE: 20200910
